FAERS Safety Report 13450115 (Version 1)
Quarter: 2017Q2

REPORT INFORMATION
  Report Type: Spontaneous
  Country: US (occurrence: US)
  Receive Date: 20170417
  Receipt Date: 20170417
  Transmission Date: 20170830
  Serious: No
  Sender: FDA-Public Use
  Company Number: US-BION-20160695

PATIENT
  Age: 87 Year
  Sex: Female
  Weight: 49.9 kg

DRUGS (2)
  1. ONE A DAY VITAMINS [Concomitant]
  2. ALEVE [Suspect]
     Active Substance: NAPROXEN SODIUM
     Indication: ANALGESIC THERAPY
     Dosage: AS NEEDED
     Route: 048

REACTIONS (3)
  - Poor quality drug administered [Recovered/Resolved]
  - Product physical issue [Unknown]
  - Burning sensation [Recovered/Resolved]

NARRATIVE: CASE EVENT DATE: 20161108
